FAERS Safety Report 5464107-2 (Version None)
Quarter: 2007Q3

REPORT INFORMATION
  Report Type: 
  Country: None (occurrence: None)
  Receive Date: 20070921
  Receipt Date: 20070911
  Transmission Date: 20080115
  Serious: Yes (Hospitalization)
  Sender: FDA-Public Use
  Company Number: JP-AMGEN-US243964

PATIENT
  Sex: Male
  Weight: 60 kg

DRUGS (11)
  1. ENBREL [Suspect]
     Indication: RHEUMATOID ARTHRITIS
     Route: 058
     Dates: start: 20061018, end: 20070310
  2. KENACORT [Concomitant]
     Indication: RHEUMATOID ARTHRITIS
     Dosage: UNKNOWN
     Route: 058
  3. LOXONIN [Concomitant]
     Indication: RHEUMATOID ARTHRITIS
     Dosage: UNKNOWN
     Route: 048
  4. MOBIC [Concomitant]
     Indication: RHEUMATOID ARTHRITIS
     Dosage: UNKNOWN
     Route: 048
  5. SPIRONOLACTONE [Concomitant]
     Dosage: UNKNOWN
     Route: 048
  6. PREDONINE [Concomitant]
     Indication: RHEUMATOID ARTHRITIS
     Dosage: UNKNOWN
     Route: 048
  7. ALFAROL [Concomitant]
     Dosage: UNKNOWN
     Route: 048
  8. LANSOPRAZOLE [Concomitant]
     Dosage: UNKNOWN
     Route: 048
  9. METALCAPTASE [Concomitant]
     Indication: RHEUMATOID ARTHRITIS
     Dosage: UNKNOWN
     Route: 048
  10. PROGRAF [Concomitant]
     Indication: RHEUMATOID ARTHRITIS
     Route: 048
     Dates: start: 20061212, end: 20070310
  11. GASTROM [Concomitant]
     Dosage: UNKNOWN
     Route: 048

REACTIONS (2)
  - HEPATIC FUNCTION ABNORMAL [None]
  - TOXIC SKIN ERUPTION [None]
